FAERS Safety Report 13682212 (Version 1)
Quarter: 2017Q2

REPORT INFORMATION
  Report Type: Spontaneous
  Country: US (occurrence: US)
  Receive Date: 20170622
  Receipt Date: 20170622
  Transmission Date: 20170830
  Serious: No
  Sender: FDA-Public Use
  Company Number: None

PATIENT
  Age: 49 Year
  Sex: Female

DRUGS (1)
  1. TETRABENAZINE 25 MG VALEANT PHARMS NORTH [Suspect]
     Active Substance: TETRABENAZINE
     Indication: PRODUCT USED FOR UNKNOWN INDICATION
     Route: 048
     Dates: start: 20170518

REACTIONS (3)
  - Fatigue [None]
  - Nightmare [None]
  - Drooling [None]

NARRATIVE: CASE EVENT DATE: 20170530
